FAERS Safety Report 10217522 (Version 3)
Quarter: 2014Q3

REPORT INFORMATION
  Report Type: Spontaneous
  Country: US (occurrence: US)
  Receive Date: 20140604
  Receipt Date: 20140822
  Transmission Date: 20150326
  Serious: No
  Sender: FDA-Public Use
  Company Number: US-009507513-1406USA002196

PATIENT
  Sex: Female

DRUGS (1)
  1. OXYTROL FOR WOMEN [Suspect]
     Active Substance: OXYBUTYNIN
     Indication: HYPERTONIC BLADDER
     Dosage: UNK, UNKNOWN
     Route: 062
     Dates: start: 201404, end: 201406

REACTIONS (8)
  - Muscle strain [Recovering/Resolving]
  - Drug ineffective [Unknown]
  - Product closure removal difficult [Unknown]
  - Musculoskeletal discomfort [Recovering/Resolving]
  - Somnolence [Recovered/Resolved]
  - Myalgia [Recovering/Resolving]
  - Muscle injury [Recovering/Resolving]
  - Muscle tightness [Unknown]
